FAERS Safety Report 5249463-2 (Version None)
Quarter: 2007Q1

REPORT INFORMATION
  Report Type: 
  Country: None (occurrence: None)
  Receive Date: 20070228
  Receipt Date: 20061109
  Transmission Date: 20070707
  Serious: No
  Sender: FDA-Public Use
  Company Number: US-GLAXOSMITHKLINE-A0626872A

PATIENT
  Age: 70 Year
  Sex: Female

DRUGS (5)
  1. VALTREX [Suspect]
     Dosage: 1G THREE TIMES PER DAY
     Dates: start: 20061107
  2. MEDROL [Concomitant]
  3. VICODIN [Concomitant]
  4. GLUCOTROL [Concomitant]
  5. ACTOS [Concomitant]

REACTIONS (1)
  - RASH [None]
